FAERS Safety Report 18846741 (Version 1)
Quarter: 2021Q1

REPORT INFORMATION
  Report Type: Report from Study
  Country: US (occurrence: US)
  Receive Date: 20210203
  Receipt Date: 20210203
  Transmission Date: 20210419
  Serious: No
  Sender: FDA-Public Use
  Company Number: US-EXELIXIS-CABO-20029886

PATIENT
  Age: 69 Year
  Sex: Male

DRUGS (5)
  1. HYDROCORTISONE. [Concomitant]
     Active Substance: HYDROCORTISONE
     Dosage: UNK
  2. CABOMETYX [Suspect]
     Active Substance: CABOZANTINIB S-MALATE
     Indication: PROSTATE CANCER
     Dosage: 40 MG, QD
     Route: 048
     Dates: start: 20200615
  3. ALEVE [Concomitant]
     Active Substance: NAPROXEN SODIUM
     Dosage: UNK
  4. CABOMETYX [Suspect]
     Active Substance: CABOZANTINIB S-MALATE
     Dosage: 20 MG, QD
     Route: 048
     Dates: start: 20200625, end: 20200710
  5. CABOMETYX [Suspect]
     Active Substance: CABOZANTINIB S-MALATE
     Dosage: 20 MG, QD (USED A PILL CUTTER TO HALF THE TABLET OF 40 MG TO GET 20 MG)
     Route: 048
     Dates: start: 20200712

REACTIONS (18)
  - Contusion [Unknown]
  - Anal pruritus [Unknown]
  - Decreased appetite [Unknown]
  - Dry skin [Recovered/Resolved]
  - Deep vein thrombosis [Unknown]
  - Dizziness [Unknown]
  - Peripheral swelling [Not Recovered/Not Resolved]
  - Blood pressure increased [Recovering/Resolving]
  - Dyspnoea [Unknown]
  - Anaemia [Unknown]
  - Off label use [Unknown]
  - Rash macular [Not Recovered/Not Resolved]
  - Thrombocytopenia [Recovering/Resolving]
  - Wrong technique in product usage process [Unknown]
  - Weight decreased [Unknown]
  - Abdominal distension [Not Recovered/Not Resolved]
  - Rectal haemorrhage [Unknown]
  - Constipation [Unknown]

NARRATIVE: CASE EVENT DATE: 20200625
